FAERS Safety Report 7424627-8 (Version None)
Quarter: 2011Q2

REPORT INFORMATION
  Report Type: 
  Country: None (occurrence: None)
  Receive Date: 20110413
  Receipt Date: 20110329
  Transmission Date: 20111010
  Serious: Yes (Hospitalization)
  Sender: FDA-Public Use
  Company Number: JPI-P-014364

PATIENT
  Age: 31 Year
  Sex: Female

DRUGS (4)
  1. DESIPRAMINE HCL [Suspect]
     Indication: CATAPLEXY
  2. AMPHETAMINE AND DEXTROAMPHETAMINE SALTS [Suspect]
     Indication: NARCOLEPSY
     Dates: start: 20100901
  3. XYREM [Suspect]
     Indication: CATAPLEXY
     Dosage: ORAL, ORAL
     Route: 048
     Dates: start: 20100601, end: 20100901
  4. XYREM [Suspect]
     Indication: CATAPLEXY
     Dosage: ORAL, ORAL
     Route: 048
     Dates: start: 20061201, end: 20090701

REACTIONS (3)
  - DYSTONIA [None]
  - DRUG EXPOSURE BEFORE PREGNANCY [None]
  - TREMOR [None]
